FAERS Safety Report 8545101-1 (Version None)
Quarter: 2012Q3

REPORT INFORMATION
  Report Type: 
  Country: None (occurrence: None)
  Receive Date: 20120727
  Receipt Date: 20060821
  Transmission Date: 20120928
  Serious: Yes (Other)
  Sender: FDA-Public Use
  Company Number: US-ROCHE-1092918

PATIENT
  Sex: Female

DRUGS (2)
  1. XOLAIR [Suspect]
     Indication: ASTHMA
     Route: 065
     Dates: end: 20060701
  2. XOLAIR [Suspect]
     Route: 065

REACTIONS (7)
  - COUGH [None]
  - WHEEZING [None]
  - SINUS HEADACHE [None]
  - OBSTRUCTIVE AIRWAYS DISORDER [None]
  - DYSPNOEA [None]
  - FATIGUE [None]
  - CHEST PAIN [None]
